FAERS Safety Report 4289233-5 (Version None)
Quarter: 2004Q1

REPORT INFORMATION
  Report Type: 
  Country: None (occurrence: None)
  Receive Date: 20040203
  Receipt Date: 20000328
  Transmission Date: 20041129
  Serious: Yes (Other)
  Sender: FDA-Public Use
  Company Number: 2000-042

PATIENT
  Age: 34 Year
  Sex: Female

DRUGS (1)
  1. DORYX [Suspect]
     Indication: PHARYNGITIS
     Dosage: 100 MG BID ORAL
     Route: 048
     Dates: start: 19910902, end: 19910903

REACTIONS (5)
  - ABDOMINAL DISTENSION [None]
  - ABDOMINAL PAIN [None]
  - ANOREXIA [None]
  - FLATULENCE [None]
  - NAUSEA [None]
